FAERS Safety Report 12845019 (Version 1)
Quarter: 2016Q4

REPORT INFORMATION
  Report Type: Spontaneous
  Country: DE (occurrence: DE)
  Receive Date: 20161013
  Receipt Date: 20161013
  Transmission Date: 20170207
  Serious: Yes (Other)
  Sender: FDA-Public Use
  Company Number: DE-TEVA-699599GER

PATIENT
  Sex: Male

DRUGS (1)
  1. MYLEPSINUM [Suspect]
     Active Substance: PRIMIDONE
     Route: 048

REACTIONS (1)
  - Systemic lupus erythematosus [Unknown]
